FAERS Safety Report 5063690-9 (Version None)
Quarter: 2006Q3

REPORT INFORMATION
  Report Type: 
  Country: None (occurrence: None)
  Receive Date: 20060703
  Receipt Date: 20060504
  Transmission Date: 20061208
  Serious: No
  Sender: FDA-Public Use
  Company Number: ENTC2006-0109

PATIENT
  Age: 71 Year
  Sex: Male

DRUGS (5)
  1. STALEVO 50 [Suspect]
     Indication: PARKINSON'S DISEASE
     Dosage: SEE IMAGE
     Route: 048
     Dates: start: 20060327, end: 20060402
  2. STALEVO 50 [Suspect]
     Indication: PARKINSON'S DISEASE
     Dosage: SEE IMAGE
     Route: 048
     Dates: start: 20060405, end: 20060426
  3. STALEVO 50 [Suspect]
     Indication: PARKINSON'S DISEASE
     Dosage: SEE IMAGE
     Route: 048
     Dates: start: 20060403
  4. STALEVO 50 [Suspect]
     Indication: PARKINSON'S DISEASE
     Dosage: SEE IMAGE
     Route: 048
     Dates: start: 20060427
  5. DIGITALIS [Concomitant]

REACTIONS (4)
  - DRUG INEFFECTIVE [None]
  - STOMACH DISCOMFORT [None]
  - STRESS [None]
  - TREMOR [None]
